FAERS Safety Report 4986286-3 (Version None)
Quarter: 2006Q2

REPORT INFORMATION
  Report Type: 
  Country: None (occurrence: None)
  Receive Date: 20060428
  Receipt Date: 20060424
  Transmission Date: 20061013
  Serious: Yes (Hospitalization)
  Sender: FDA-Public Use
  Company Number: AU-MERCK-0604AUS00194

PATIENT
  Age: 45 Year
  Sex: Male

DRUGS (3)
  1. EMEND [Suspect]
     Indication: PROPHYLAXIS OF NAUSEA AND VOMITING
     Route: 048
     Dates: start: 20060401
  2. CYCLOPHOSPHAMIDE [Concomitant]
     Route: 065
     Dates: start: 20060401, end: 20060401
  3. FLUOROURACIL [Concomitant]
     Route: 065
     Dates: start: 20060401, end: 20060401

REACTIONS (2)
  - HEADACHE [None]
  - PHOTOPHOBIA [None]
